FAERS Safety Report 4664210-0 (Version None)
Quarter: 2005Q2

REPORT INFORMATION
  Report Type: 
  Country: None (occurrence: None)
  Receive Date: 20050516
  Receipt Date: 20050516
  Transmission Date: 20051028
  Serious: Yes (Disabling)
  Sender: FDA-Public Use
  Company Number: None

PATIENT
  Sex: Female
  Weight: 89.8122 kg

DRUGS (1)
  1. ZICAM [Suspect]
     Indication: ANOSMIA
     Dosage: PER PACKAGE DIRECTIONS
     Dates: start: 20050301, end: 20050401

REACTIONS (1)
  - ANOSMIA [None]
